FAERS Safety Report 9265250 (Version 1)
Quarter: 2013Q2

REPORT INFORMATION
  Report Type: Spontaneous
  Country: US (occurrence: US)
  Receive Date: 20130501
  Receipt Date: 20130501
  Transmission Date: 20140414
  Serious: No
  Sender: FDA-Public Use
  Company Number: US-ASTRAZENECA-2013SE25733

PATIENT
  Sex: Female

DRUGS (3)
  1. NEXIUM [Suspect]
     Indication: GASTROOESOPHAGEAL REFLUX DISEASE
     Route: 048
  2. FASLODEX [Concomitant]
  3. HERCEPTIN [Concomitant]

REACTIONS (4)
  - Feeling abnormal [Unknown]
  - Hypersomnia [Unknown]
  - Abdominal discomfort [Unknown]
  - Pruritus [Unknown]
